FAERS Safety Report 6865457-5 (Version None)
Quarter: 2010Q3

REPORT INFORMATION
  Report Type: 
  Country: None (occurrence: None)
  Receive Date: 20100721
  Receipt Date: 20080605
  Transmission Date: 20110219
  Serious: Yes (Other)
  Sender: FDA-Public Use
  Company Number: US-PFIZER INC-2008035993

PATIENT
  Sex: Female
  Weight: 74.8 kg

DRUGS (4)
  1. CHANTIX [Suspect]
     Indication: SMOKING CESSATION THERAPY
  2. TRAMADOL [Concomitant]
  3. METHOCARBAMOL [Concomitant]
  4. PERCOCET [Concomitant]
     Indication: BACK DISORDER

REACTIONS (1)
  - SUICIDAL IDEATION [None]
